FAERS Safety Report 4771108-6 (Version None)
Quarter: 2005Q3

REPORT INFORMATION
  Report Type: 
  Country: None (occurrence: None)
  Receive Date: 20050914
  Receipt Date: 20050901
  Transmission Date: 20060218
  Serious: Yes (Other)
  Sender: FDA-Public Use
  Company Number: 2005123236

PATIENT
  Sex: Female
  Weight: 68.4932 kg

DRUGS (1)
  1. DILANTIN [Suspect]
     Indication: CONVULSION
     Dosage: 300 MG (100 MG, 1 IN 1 D), ORAL
     Route: 048
     Dates: start: 19980501

REACTIONS (2)
  - DIALYSIS [None]
  - THYROID DISORDER [None]
